FAERS Safety Report 8778195 (Version 1)
Quarter: 2012Q4

REPORT INFORMATION
  Report Type: 
  Country: CN (occurrence: CN)
  Receive Date: 20120912
  Receipt Date: 20120912
  Transmission Date: 20130627
  Serious: Yes (Other)
  Sender: FDA-Public Use
  Company Number: CN-BRISTOL-MYERS SQUIBB COMPANY-16889107

PATIENT
  Age: 53 Year
  Sex: Female
  Weight: 65 kg

DRUGS (1)
  1. METFORMIN HCL TABS [Suspect]
     Indication: DIABETES MELLITUS
     Route: 048
     Dates: start: 20090211, end: 20090212

REACTIONS (5)
  - Anaphylactoid reaction [Recovering/Resolving]
  - Dizziness [None]
  - Head discomfort [None]
  - Cardiac discomfort [None]
  - Somnolence [None]
